FAERS Safety Report 18237649 (Version 1)
Quarter: 2020Q3

REPORT INFORMATION
  Report Type: Spontaneous
  Country: CN (occurrence: CN)
  Receive Date: 20200907
  Receipt Date: 20200907
  Transmission Date: 20201103
  Serious: Yes (Death, Hospitalization, Other)
  Sender: FDA-Public Use
  Company Number: CN-ACCORD-199585

PATIENT
  Age: 63 Year
  Sex: Male

DRUGS (2)
  1. CISPLATIN. [Suspect]
     Active Substance: CISPLATIN
     Indication: HORMONE-REFRACTORY PROSTATE CANCER
     Dosage: DAY 1?3, ONCE EVERY 3 WEEKS
     Dates: start: 201902
  2. ETOPOSIDE. [Suspect]
     Active Substance: ETOPOSIDE
     Indication: HORMONE-REFRACTORY PROSTATE CANCER
     Dosage: DAY 1?5, ONCE EVERY 3 WEEKS
     Dates: start: 201902

REACTIONS (4)
  - Flatulence [Unknown]
  - Electrolyte imbalance [Unknown]
  - Hypoproteinaemia [Unknown]
  - Myelosuppression [Unknown]

NARRATIVE: CASE EVENT DATE: 2019
